FAERS Safety Report 5074224-7 (Version None)
Quarter: 2006Q3

REPORT INFORMATION
  Report Type: 
  Country: None (occurrence: None)
  Receive Date: 20060714
  Receipt Date: 20060525
  Transmission Date: 20061208
  Serious: No
  Sender: FDA-Public Use
  Company Number: 2006SP002217

PATIENT
  Age: 33 Year
  Sex: Male
  Weight: 72.5755 kg

DRUGS (4)
  1. LUNESTA [Suspect]
     Indication: INSOMNIA
     Dosage: 3 MG;1X;ORAL
     Route: 048
     Dates: start: 20060525, end: 20060525
  2. AMBIEN [Concomitant]
  3. ATORVASTATIN CALCIUM [Concomitant]
  4. IBUPROFEN [Concomitant]

REACTIONS (1)
  - DYSGEUSIA [None]
